FAERS Safety Report 21693143 (Version 5)
Quarter: 2023Q1

REPORT INFORMATION
  Report Type: Report from Study
  Country: US (occurrence: US)
  Receive Date: 20221207
  Receipt Date: 20230214
  Transmission Date: 20230418
  Serious: Yes (Hospitalization)
  Sender: FDA-Public Use
  Company Number: US-002147023-NVSC2022US282650

PATIENT
  Sex: Female

DRUGS (1)
  1. ENTRESTO [Suspect]
     Active Substance: SACUBITRIL\VALSARTAN
     Indication: Product used for unknown indication
     Dosage: 0.5 DOSAGE FORM, BID
     Route: 048
     Dates: start: 202211, end: 202212

REACTIONS (10)
  - Internal haemorrhage [Recovering/Resolving]
  - Fatigue [Not Recovered/Not Resolved]
  - Prescribed underdose [Unknown]
  - COVID-19 [Recovering/Resolving]
  - Cough [Unknown]
  - Dyspnoea [Unknown]
  - Asthenia [Unknown]
  - Sinus disorder [Recovering/Resolving]
  - Pharyngeal swelling [Unknown]
  - Wrong technique in product usage process [Unknown]
